FAERS Safety Report 15679689 (Version 1)
Quarter: 2018Q4

REPORT INFORMATION
  Report Type: Spontaneous
  Country: US (occurrence: US)
  Receive Date: 20181203
  Receipt Date: 20181203
  Transmission Date: 20190205
  Serious: Yes (Hospitalization)
  Sender: FDA-Public Use
  Company Number: US-PFIZER INC-2018490908

PATIENT
  Age: 73 Year
  Sex: Male

DRUGS (2)
  1. NITROGLYCERIN. [Suspect]
     Active Substance: NITROGLYCERIN
     Indication: PAIN IN EXTREMITY
  2. NITROGLYCERIN. [Suspect]
     Active Substance: NITROGLYCERIN
     Indication: CHEST PAIN
     Dosage: UNK

REACTIONS (4)
  - Atrial fibrillation [Unknown]
  - Fatigue [Unknown]
  - Feeling abnormal [Unknown]
  - Hypotension [Unknown]
